FAERS Safety Report 9386389 (Version 1)
Quarter: 2013Q3

REPORT INFORMATION
  Report Type: Spontaneous
  Country: US (occurrence: US)
  Receive Date: 20130708
  Receipt Date: 20130708
  Transmission Date: 20140515
  Serious: No
  Sender: FDA-Public Use
  Company Number: US-009507513-1306USA014162

PATIENT
  Sex: Female

DRUGS (2)
  1. JANUMET [Suspect]
     Route: 048
  2. LEVEMIR [Concomitant]
     Dosage: FLEXPEN

REACTIONS (2)
  - Fatigue [Unknown]
  - Injection site bruising [Unknown]
